FAERS Safety Report 22147984 (Version 1)
Quarter: 2023Q1

REPORT INFORMATION
  Report Type: Report from Study
  Country: EG (occurrence: EG)
  Receive Date: 20230328
  Receipt Date: 20230328
  Transmission Date: 20230417
  Serious: Yes (Life-Threatening)
  Sender: FDA-Public Use
  Company Number: EG-002147023-NVSC2023EG070988

PATIENT
  Sex: Male

DRUGS (2)
  1. ENTRESTO [Suspect]
     Active Substance: SACUBITRIL\VALSARTAN
     Indication: Cardiac failure
     Dosage: 150 MG, BID (100 MG ONE TABLET AT MORNING AND ENTRESTO 50 MG (WAS NOT CONFIRMED IF SHE MEANS HALF TA
     Route: 048
     Dates: start: 202206
  2. ENTRESTO [Suspect]
     Active Substance: SACUBITRIL\VALSARTAN
     Dosage: 100 MG, BID
     Route: 048

REACTIONS (2)
  - Ventricular flutter [Unknown]
  - Wrong technique in product usage process [Unknown]
